FAERS Safety Report 9760809 (Version 1)
Quarter: 2013Q4

REPORT INFORMATION
  Report Type: Spontaneous
  Country: US (occurrence: US)
  Receive Date: 20131216
  Receipt Date: 20131216
  Transmission Date: 20140711
  Serious: Yes (Other)
  Sender: FDA-Public Use
  Company Number: US-PFIZER INC-2013354931

PATIENT
  Age: 50 Year
  Sex: Female

DRUGS (14)
  1. XELJANZ [Suspect]
     Indication: RHEUMATOID ARTHRITIS
     Dosage: 5 MG, 2X/DAY
     Route: 048
     Dates: start: 20130905
  2. ZANAFLEX [Concomitant]
     Dosage: UNK
  3. WELLBUTRIN [Concomitant]
     Dosage: UNK
  4. ZOFRAN [Concomitant]
     Dosage: UNK
  5. ALBUTEROL [Concomitant]
     Dosage: UNK
  6. ESTRADIOL [Concomitant]
     Dosage: UNK
  7. FOLIC ACID [Concomitant]
     Dosage: UNK
  8. GABAPENTIN [Concomitant]
     Dosage: UNK
  9. METHADONE [Concomitant]
     Dosage: UNK
  10. SULFASALAZINE [Concomitant]
     Dosage: UNK
  11. PERCOCET [Concomitant]
     Dosage: UNK
  12. PREDNISONE [Concomitant]
     Dosage: UNK
  13. RANOLAZINE [Concomitant]
     Dosage: UNK
  14. SINGULAIR [Concomitant]
     Dosage: UNK

REACTIONS (1)
  - Oropharyngeal pain [Unknown]
